FAERS Safety Report 18507932 (Version 1)
Quarter: 2020Q4

REPORT INFORMATION
  Report Type: Spontaneous
  Country: FR (occurrence: FR)
  Receive Date: 20201116
  Receipt Date: 20201116
  Transmission Date: 20210114
  Serious: Yes (Hospitalization)
  Sender: FDA-Public Use
  Company Number: FR-PFIZER INC-2020447933

PATIENT
  Age: 73 Year
  Sex: Male
  Weight: 56 kg

DRUGS (1)
  1. LORVIQUA [Suspect]
     Active Substance: LORLATINIB
     Indication: BRONCHIAL CARCINOMA
     Dosage: 100 MG, 1X/DAY
     Route: 048
     Dates: start: 20200801, end: 20201010

REACTIONS (1)
  - Pleural effusion [Unknown]

NARRATIVE: CASE EVENT DATE: 20201010
